FAERS Safety Report 6161230-4 (Version None)
Quarter: 2009Q2

REPORT INFORMATION
  Report Type: 
  Country: None (occurrence: None)
  Receive Date: 20090421
  Receipt Date: 20090416
  Transmission Date: 20091009
  Serious: Yes (Death, Life-Threatening)
  Sender: FDA-Public Use
  Company Number: JP-ELI_LILLY_AND_COMPANY-JP200904004306

PATIENT
  Age: 78 Year
  Sex: Male

DRUGS (1)
  1. ALIMTA [Suspect]
     Indication: PLEURAL MESOTHELIOMA MALIGNANT
     Dosage: 500 MG, OTHER
     Route: 042
     Dates: start: 20081201, end: 20081201

REACTIONS (2)
  - INTERSTITIAL LUNG DISEASE [None]
  - PNEUMONIA STAPHYLOCOCCAL [None]
